FAERS Safety Report 9517219 (Version 5)
Quarter: 2014Q3

REPORT INFORMATION
  Report Type: Spontaneous
  Country: US (occurrence: US)
  Receive Date: 20130911
  Receipt Date: 20140915
  Transmission Date: 20150326
  Serious: Yes (Hospitalization, Other)
  Sender: FDA-Public Use
  Company Number: US-009507513-1309USA004613

PATIENT
  Sex: Female
  Weight: 88.44 kg

DRUGS (2)
  1. NUVARING [Suspect]
     Active Substance: ETHINYL ESTRADIOL\ETONOGESTREL
     Indication: CONTRACEPTION
     Dosage: UNK
     Dates: start: 2006, end: 20111028
  2. ADVAIR HFA [Concomitant]
     Active Substance: FLUTICASONE PROPIONATE\SALMETEROL XINAFOATE
     Dosage: UNK
     Dates: start: 2003, end: 2011

REACTIONS (31)
  - Pulmonary fibrosis [Unknown]
  - Post-traumatic stress disorder [Unknown]
  - Abdominoplasty [Unknown]
  - Tonsillectomy [Unknown]
  - Pulmonary hypertension [Unknown]
  - Chest pain [Recovering/Resolving]
  - Pulmonary embolism [Unknown]
  - Migraine [Unknown]
  - Seasonal allergy [Unknown]
  - Back pain [Unknown]
  - Hyperlipidaemia [Unknown]
  - Dyspnoea [Unknown]
  - Ovarian cystectomy [Unknown]
  - Colectomy [Unknown]
  - Liposuction [Unknown]
  - Liver disorder [Unknown]
  - Chest pain [Unknown]
  - Urine analysis abnormal [Unknown]
  - Deep vein thrombosis [Unknown]
  - Eyelid ptosis [Unknown]
  - Generalised anxiety disorder [Unknown]
  - Foot fracture [Unknown]
  - Migraine [Unknown]
  - Thrombosis [Unknown]
  - Weight increased [Unknown]
  - Transient ischaemic attack [Unknown]
  - Gastrooesophageal reflux disease [Unknown]
  - Meningitis viral [Unknown]
  - Thrombocytopenia [Unknown]
  - Pulmonary infarction [Unknown]
  - Vertigo [Unknown]

NARRATIVE: CASE EVENT DATE: 2007
